FAERS Safety Report 21402468 (Version 1)
Quarter: 2022Q4

REPORT INFORMATION
  Report Type: Spontaneous
  Country: DE (occurrence: DE)
  Receive Date: 20221003
  Receipt Date: 20221003
  Transmission Date: 20230113
  Serious: Yes (Hospitalization)
  Sender: FDA-Public Use
  Company Number: DE-ADRED-08118-01

PATIENT
  Age: 83 Year
  Sex: Female

DRUGS (6)
  1. TRULICITY [Interacting]
     Active Substance: DULAGLUTIDE
     Indication: Product used for unknown indication
     Dosage: 1.5 MG, UNKNOWN
     Route: 065
  2. METFORMIN\SITAGLIPTIN [Interacting]
     Active Substance: METFORMIN\SITAGLIPTIN
     Indication: Product used for unknown indication
     Dosage: UNK UNK, BID (50MG/1000MG)
     Route: 065
  3. ENALAPRIL [Concomitant]
     Active Substance: ENALAPRIL
     Indication: Product used for unknown indication
     Dosage: UNK UNK, BID
  4. CYANOCOBALAMIN [Concomitant]
     Active Substance: CYANOCOBALAMIN
     Indication: Product used for unknown indication
     Dosage: 1 MG, DAILY
  5. APIXABAN [Concomitant]
     Active Substance: APIXABAN
     Indication: Product used for unknown indication
     Dosage: 5 MG, BID
  6. METOPROLOL [Concomitant]
     Active Substance: METOPROLOL
     Indication: Product used for unknown indication
     Dosage: UNK UNK, BID

REACTIONS (10)
  - Faeces pale [Unknown]
  - Tremor [Unknown]
  - Chromaturia [Unknown]
  - Weight decreased [Unknown]
  - Cholelithiasis obstructive [Unknown]
  - Jaundice [Unknown]
  - Pruritus [Unknown]
  - Labelled drug-drug interaction medication error [Unknown]
  - Cholestasis [Unknown]
  - Decreased appetite [Unknown]
